FAERS Safety Report 14712300 (Version 2)
Quarter: 2019Q1

REPORT INFORMATION
  Report Type: Report from Study
  Country: US (occurrence: US)
  Receive Date: 20180404
  Receipt Date: 20190329
  Transmission Date: 20190417
  Serious: No
  Sender: FDA-Public Use
  Company Number: US-AMGEN-USASL2018043923

PATIENT
  Age: 41 Year
  Sex: Female

DRUGS (2)
  1. ENBREL [Suspect]
     Active Substance: ETANERCEPT
     Dosage: 50 MILLIGRAM, Q2WK (EVERY OTHER WEEK)
     Route: 065
  2. ENBREL [Suspect]
     Active Substance: ETANERCEPT
     Indication: PRODUCT USED FOR UNKNOWN INDICATION
     Dosage: 50 MILLIGRAM, QWK
     Route: 065

REACTIONS (4)
  - Joint swelling [Unknown]
  - Product dose omission [Unknown]
  - Intentional product misuse [Unknown]
  - Peripheral swelling [Unknown]
